FAERS Safety Report 26188826 (Version 1)
Quarter: 2025Q4

REPORT INFORMATION
  Report Type: Spontaneous
  Country: US (occurrence: US)
  Receive Date: 20251222
  Receipt Date: 20251222
  Transmission Date: 20260118
  Serious: Yes (Other)
  Sender: ALEXION PHARMACEUTICALS
  Company Number: US-AstraZeneca-CH-01015306A

PATIENT
  Age: 70 Year

DRUGS (1)
  1. CALQUENCE [Suspect]
     Active Substance: ACALABRUTINIB
     Indication: Chronic lymphocytic leukaemia
     Dosage: UNK
     Route: 065

REACTIONS (5)
  - Leukaemic infiltration pulmonary [Unknown]
  - Lung disorder [Unknown]
  - Pyrexia [Unknown]
  - Headache [Unknown]
  - Back pain [Unknown]
